FAERS Safety Report 6762643-X (Version None)
Quarter: 2010Q2

REPORT INFORMATION
  Report Type: 
  Country: None (occurrence: None)
  Receive Date: 20100609
  Receipt Date: 20100602
  Transmission Date: 20101027
  Serious: Yes (Other)
  Sender: FDA-Public Use
  Company Number: CHPA2010JP09638

PATIENT

DRUGS (3)
  1. TAVEGYL (NCH) [Suspect]
     Indication: NASOPHARYNGITIS
     Dosage: UNK, UNK
     Route: 048
  2. TEGRETOL [Suspect]
     Indication: EPILEPSY
     Dosage: UNK, UNK
     Route: 048
  3. SELENICA-R [Suspect]
     Indication: EPILEPSY
     Dosage: UNK, UNK
     Route: 048

REACTIONS (2)
  - CONVULSION [None]
  - NASOPHARYNGITIS [None]
